FAERS Safety Report 19247716 (Version 1)
Quarter: 2021Q2

REPORT INFORMATION
  Report Type: Spontaneous
  Country: CH (occurrence: CH)
  Receive Date: 20210512
  Receipt Date: 20210512
  Transmission Date: 20210717
  Serious: Yes (Death, Hospitalization)
  Sender: FDA-Public Use
  Company Number: CH-TEVA-2021-CH-1910003

PATIENT
  Age: 8 Decade
  Sex: Male

DRUGS (2)
  1. CO?AMOXICILLIN [Suspect]
     Active Substance: AMOXICILLIN\CLAVULANATE POTASSIUM
     Indication: SUPERINFECTION
     Route: 042
     Dates: start: 2019
  2. CO?AMOXICILLIN [Suspect]
     Active Substance: AMOXICILLIN\CLAVULANATE POTASSIUM
     Dosage: FOUR TIMES
     Route: 042
     Dates: start: 2019

REACTIONS (2)
  - Nephritis [Unknown]
  - Haemodynamic instability [Unknown]

NARRATIVE: CASE EVENT DATE: 2019
